FAERS Safety Report 23584847 (Version 2)
Quarter: 2025Q1

REPORT INFORMATION
  Report Type: Spontaneous
  Country: US (occurrence: US)
  Receive Date: 20240301
  Receipt Date: 20250325
  Transmission Date: 20250409
  Serious: No
  Sender: RECORDATI
  Company Number: US-RECORDATI RARE DISEASE INC.-2024001356

PATIENT

DRUGS (18)
  1. CYSTADANE [Suspect]
     Active Substance: BETAINE
     Indication: Methylenetetrahydrofolate reductase deficiency
     Dosage: 10 GRAM, BID (10 SCOOP TWICE A DAY )
     Route: 048
     Dates: start: 20140701
  2. CYSTADANE [Suspect]
     Active Substance: BETAINE
     Indication: Amino acid metabolism disorder
  3. CYSTADANE [Suspect]
     Active Substance: BETAINE
     Indication: Homocystinuria
  4. CHILDRENS TYLENOL [Concomitant]
     Active Substance: ACETAMINOPHEN
     Indication: Product used for unknown indication
  5. MIRALAX [Concomitant]
     Active Substance: POLYETHYLENE GLYCOL 3350
     Indication: Product used for unknown indication
  6. PHENOBARBITAL [Concomitant]
     Active Substance: PHENOBARBITAL
     Indication: Product used for unknown indication
  7. FOLIC ACID [Concomitant]
     Active Substance: FOLIC ACID
     Indication: Product used for unknown indication
     Dosage: 1 MG, QD
  8. HYDROXOCOBALAMIN [Concomitant]
     Active Substance: HYDROXOCOBALAMIN
     Indication: Product used for unknown indication
     Dosage: INJECTION DAILY
  9. CLONAZEPAM [Concomitant]
     Active Substance: CLONAZEPAM
     Indication: Product used for unknown indication
  10. KEPPRA [Concomitant]
     Active Substance: LEVETIRACETAM
     Indication: Product used for unknown indication
     Dosage: 4 MILLILITER, QD
  11. VITAMIN B6 [Concomitant]
     Active Substance: PYRIDOXINE HYDROCHLORIDE
     Indication: Product used for unknown indication
     Dosage: 100 MG, BID
  12. EleCare Jr [Concomitant]
     Indication: Supplementation therapy
  13. TENEX [Concomitant]
     Active Substance: GUANFACINE HYDROCHLORIDE
     Indication: Product used for unknown indication
  14. ALENDRONATE [Concomitant]
     Active Substance: ALENDRONATE SODIUM
     Indication: Product used for unknown indication
  15. VITAMIN B [Concomitant]
     Active Substance: VITAMIN B
     Indication: Product used for unknown indication
     Dosage: 50000 INTERNATIONAL UNIT, QW
  16. LAMOTRIGINE [Concomitant]
     Active Substance: LAMOTRIGINE
     Indication: Product used for unknown indication
     Dosage: 75 MG, BID
  17. CLONIDINE [Concomitant]
     Active Substance: CLONIDINE
     Indication: Product used for unknown indication
     Dosage: 0.1 MG, BID
  18. LEVOCARNITINE [Concomitant]
     Active Substance: LEVOCARNITINE
     Indication: Product used for unknown indication
     Dosage: 2 MILLILITER, QD (SOLUTION)

REACTIONS (1)
  - Ear infection [Unknown]

NARRATIVE: CASE EVENT DATE: 20240216
